FAERS Safety Report 9761029 (Version 2)
Quarter: 2013Q4

REPORT INFORMATION
  Report Type: Spontaneous
  Country: US (occurrence: US)
  Receive Date: 20131216
  Receipt Date: 20131216
  Transmission Date: 20140711
  Serious: Yes (Hospitalization, Other)
  Sender: FDA-Public Use
  Company Number: US-RB-060784-13

PATIENT
  Age: 59 Year
  Sex: Male

DRUGS (2)
  1. MUCINEX DM MAXIMUM STRENGTH [Suspect]
     Indication: COUGH
  2. DEXTROMETHORPHAN [Suspect]
     Indication: COUGH

REACTIONS (5)
  - Hallucination [Unknown]
  - Intentional drug misuse [Unknown]
  - Intentional overdose [Unknown]
  - Drug ineffective [Not Recovered/Not Resolved]
  - Unevaluable event [Unknown]
